FAERS Safety Report 7375309-2 (Version None)
Quarter: 2011Q1

REPORT INFORMATION
  Report Type: 
  Country: None (occurrence: None)
  Receive Date: 20110325
  Receipt Date: 20110316
  Transmission Date: 20110831
  Serious: Yes (Hospitalization, Other)
  Sender: FDA-Public Use
  Company Number: US-GENZYME-CERZ-1001973

PATIENT

DRUGS (2)
  1. CEREZYME [Suspect]
     Indication: GAUCHER'S DISEASE
     Dosage: 45 U/KG, Q2W
     Route: 042
     Dates: start: 20060210
  2. CEREZYME [Suspect]
     Dosage: 60 U/KG, Q2W
     Route: 042

REACTIONS (1)
  - CARDIAC DISORDER [None]
